FAERS Safety Report 5980892-5 (Version None)
Quarter: 2008Q4

REPORT INFORMATION
  Report Type: 
  Country: None (occurrence: None)
  Receive Date: 20081205
  Receipt Date: 20080702
  Transmission Date: 20090506
  Serious: No
  Sender: FDA-Public Use
  Company Number: A0735711A

PATIENT
  Age: 36 Year
  Sex: Male

DRUGS (1)
  1. COMMIT [Suspect]

REACTIONS (2)
  - INTENTIONAL DRUG MISUSE [None]
  - OROPHARYNGEAL BLISTERING [None]
